FAERS Safety Report 19022094 (Version 1)
Quarter: 2021Q1

REPORT INFORMATION
  Report Type: Spontaneous
  Country: US (occurrence: US)
  Receive Date: 20210317
  Receipt Date: 20210317
  Transmission Date: 20210420
  Serious: No
  Sender: FDA-Public Use
  Company Number: US-ABBVIE-20K-163-3644392-00

PATIENT
  Age: 67 Year
  Sex: Female
  Weight: 48.08 kg

DRUGS (4)
  1. XELJANZ XR [Suspect]
     Active Substance: TOFACITINIB CITRATE
     Route: 048
     Dates: start: 20200923
  2. PRIMIDONE. [Concomitant]
     Active Substance: PRIMIDONE
     Indication: PRODUCT USED FOR UNKNOWN INDICATION
  3. XELJANZ XR [Suspect]
     Active Substance: TOFACITINIB CITRATE
     Indication: RHEUMATOID ARTHRITIS
     Route: 048
     Dates: start: 2018, end: 202009
  4. RINVOQ [Suspect]
     Active Substance: UPADACITINIB
     Indication: RHEUMATOID ARTHRITIS
     Route: 048
     Dates: start: 20200909

REACTIONS (9)
  - Body height decreased [Unknown]
  - Respiratory disorder [Unknown]
  - Coccidioidomycosis [Unknown]
  - Swelling [Unknown]
  - Essential tremor [Unknown]
  - Pain [Unknown]
  - Musculoskeletal disorder [Unknown]
  - Back pain [Unknown]
  - Scoliosis [Unknown]

NARRATIVE: CASE EVENT DATE: 202009
